FAERS Safety Report 25492535 (Version 1)
Quarter: 2025Q2

REPORT INFORMATION
  Report Type: Spontaneous
  Country: US (occurrence: US)
  Receive Date: 20250630
  Receipt Date: 20250630
  Transmission Date: 20250716
  Serious: Yes (Hospitalization, Other)
  Sender: BRISTOL-MYERS SQUIBB COMPANY
  Company Number: US-BRISTOL-MYERS SQUIBB COMPANY-2025-088818

PATIENT
  Age: 70 Year
  Sex: Male

DRUGS (4)
  1. POMALYST [Suspect]
     Active Substance: POMALIDOMIDE
     Indication: Plasma cell myeloma
     Route: 048
     Dates: start: 20250210, end: 20250429
  2. TECLISTAMAB [Concomitant]
     Active Substance: TECLISTAMAB
     Indication: Plasma cell myeloma
     Dates: start: 20250509
  3. TECLISTAMAB [Concomitant]
     Active Substance: TECLISTAMAB
     Dates: start: 20250512
  4. TECLISTAMAB [Concomitant]
     Active Substance: TECLISTAMAB
     Dates: start: 20250506

REACTIONS (4)
  - Hypercalcaemia [Recovering/Resolving]
  - Acute kidney injury [Unknown]
  - Cerebellar infarction [Unknown]
  - Cerebrovascular accident [Unknown]

NARRATIVE: CASE EVENT DATE: 20250429
